FAERS Safety Report 16617759 (Version 1)
Quarter: 2019Q3

REPORT INFORMATION
  Report Type: Spontaneous
  Country: JP (occurrence: JP)
  Receive Date: 20190723
  Receipt Date: 20190723
  Transmission Date: 20191004
  Serious: Yes (Other)
  Sender: FDA-Public Use
  Company Number: JP-PFIZER INC-2019307875

PATIENT
  Age: 3 Decade
  Sex: Female

DRUGS (3)
  1. ETIZOLAM [Suspect]
     Active Substance: ETIZOLAM
     Indication: STRESS
     Dosage: UNK
     Route: 048
  2. HYDROXYZINE PAMOATE. [Suspect]
     Active Substance: HYDROXYZINE PAMOATE
     Indication: STRESS
     Dosage: UNK
     Route: 048
  3. BROTIZOLAM [Suspect]
     Active Substance: BROTIZOLAM
     Indication: STRESS
     Dosage: UNK
     Route: 048

REACTIONS (5)
  - Overdose [Unknown]
  - Vomiting [Unknown]
  - Depressed level of consciousness [Unknown]
  - Blood fibrinogen decreased [Unknown]
  - Toxicity to various agents [Unknown]
